FAERS Safety Report 14126654 (Version 4)
Quarter: 2018Q1

REPORT INFORMATION
  Report Type: Spontaneous
  Country: US (occurrence: US)
  Receive Date: 20171025
  Receipt Date: 20180219
  Transmission Date: 20180508
  Serious: Yes (Life-Threatening)
  Sender: FDA-Public Use
  Company Number: US-ROMARKLABS-2017-US-000129

PATIENT
  Age: 10 Year
  Sex: Male
  Weight: 40.82 kg

DRUGS (2)
  1. ALINIA [Suspect]
     Active Substance: NITAZOXANIDE
     Indication: DIARRHOEA
     Dosage: 200 MG TWICE DAILY
     Route: 048
     Dates: start: 20170804, end: 20170807
  2. PEPTO-BISMOL [Concomitant]
     Active Substance: BISMUTH SUBSALICYLATE
     Indication: DIARRHOEA
     Route: 048
     Dates: start: 201707, end: 201708

REACTIONS (17)
  - Urticaria [Recovered/Resolved]
  - Abdominal pain upper [Recovered/Resolved]
  - Serum sickness-like reaction [Recovered/Resolved]
  - Ear swelling [Recovered/Resolved]
  - Arthralgia [Recovered/Resolved]
  - Upper respiratory tract infection [Unknown]
  - Eye swelling [Recovered/Resolved]
  - Gastrointestinal hypomotility [Recovered/Resolved]
  - Constipation [Recovered/Resolved]
  - Rash generalised [Recovered/Resolved]
  - Chest pain [Recovered/Resolved]
  - Mediastinal mass [Unknown]
  - Hypoacusis [Recovered/Resolved]
  - Chromaturia [Recovered/Resolved]
  - Joint swelling [Recovered/Resolved]
  - Gait disturbance [Recovered/Resolved]
  - Axillary pain [Recovered/Resolved]

NARRATIVE: CASE EVENT DATE: 20170804
